FAERS Safety Report 17448309 (Version 3)
Quarter: 2020Q2

REPORT INFORMATION
  Report Type: Spontaneous
  Country: US (occurrence: US)
  Receive Date: 20200223
  Receipt Date: 20200621
  Transmission Date: 20200713
  Serious: Yes (Hospitalization, Other)
  Sender: FDA-Public Use
  Company Number: US-009507513-2002USA005518

PATIENT
  Age: 58 Year
  Sex: Female

DRUGS (2)
  1. PROVENTIL [Suspect]
     Active Substance: ALBUTEROL
     Dosage: NEBULIZATION TREATMENTS OF ALBUTEROL/IPRATROPIUM COMBINATION EVERY 8 HOURS AND ALBUTEROL ALONE EVERY
  2. IPRATROPIUM BROMIDE. [Concomitant]
     Active Substance: IPRATROPIUM BROMIDE
     Dosage: NEBULIZATION TREATMENTS OF ALBUTEROL/IPRATROPIUM COMBINATION EVERY 8 HOURS
     Route: 055

REACTIONS (1)
  - Lactic acidosis [Recovered/Resolved]
